FAERS Safety Report 7756772-1 (Version None)
Quarter: 2011Q3

REPORT INFORMATION
  Report Type: 
  Country: None (occurrence: None)
  Receive Date: 20110916
  Receipt Date: 20110912
  Transmission Date: 20111222
  Serious: Yes (Life-Threatening, Disabling)
  Sender: FDA-Public Use
  Company Number: DK-PFIZER INC-2009222549

PATIENT
  Age: 55 Year
  Sex: Female
  Weight: 55 kg

DRUGS (2)
  1. SULFASALAZINE [Suspect]
     Indication: RHEUMATOID ARTHRITIS
     Dosage: 500 MG, UNK
     Route: 048
     Dates: start: 20090116, end: 20090225
  2. PREDNISOLONE [Concomitant]
     Indication: RHEUMATOID ARTHRITIS
     Dosage: UNK
     Route: 065
     Dates: start: 20081017, end: 20090416

REACTIONS (8)
  - URTICARIA [None]
  - SKIN EXFOLIATION [None]
  - TINNITUS [None]
  - NAIL ATROPHY [None]
  - MUCOSAL DRYNESS [None]
  - STEVENS-JOHNSON SYNDROME [None]
  - DEAFNESS BILATERAL [None]
  - ALOPECIA [None]
